FAERS Safety Report 7457841-6 (Version None)
Quarter: 2011Q2

REPORT INFORMATION
  Report Type: 
  Country: None (occurrence: None)
  Receive Date: 20110504
  Receipt Date: 20110421
  Transmission Date: 20111010
  Serious: No
  Sender: FDA-Public Use
  Company Number: US-B.I. PHARMACEUTICALS,INC./RIDGEFIELD-2011-BP-05362BP

PATIENT
  Age: 67 Year
  Sex: Female

DRUGS (8)
  1. PREDNISONE [Concomitant]
     Indication: EOSINOPHILIC PNEUMONIA
     Dates: start: 20000101
  2. COUMADIN [Concomitant]
     Dosage: 5 MG
  3. PRADAXA [Suspect]
     Indication: ATRIAL FIBRILLATION
     Dosage: 300 MG
     Route: 048
     Dates: start: 20110101
  4. MULTAQ [Concomitant]
     Dosage: 400 MG
  5. CARAFATE [Concomitant]
  6. PREVACID [Concomitant]
  7. PRADAXA [Suspect]
     Indication: CEREBROVASCULAR ACCIDENT PROPHYLAXIS
  8. CARDIZEM [Concomitant]
     Dosage: 180 MG

REACTIONS (2)
  - OESOPHAGEAL PAIN [None]
  - DYSPEPSIA [None]
